FAERS Safety Report 18330505 (Version 1)
Quarter: 2020Q3

REPORT INFORMATION
  Report Type: Spontaneous
  Country: DE (occurrence: DE)
  Receive Date: 20200930
  Receipt Date: 20200930
  Transmission Date: 20201103
  Serious: Yes (Hospitalization)
  Sender: FDA-Public Use
  Company Number: DE-MYLANLABS-2020M1081843

PATIENT
  Age: 66 Year
  Sex: Male
  Weight: 110 kg

DRUGS (15)
  1. PACLITAXEL. [Suspect]
     Active Substance: PACLITAXEL
     Indication: PRODUCT USED FOR UNKNOWN INDICATION
     Dosage: UNK(NK MG, LETZTE 16012020)
  2. GEMCITABINE. [Suspect]
     Active Substance: GEMCITABINE
     Indication: PRODUCT USED FOR UNKNOWN INDICATION
     Dosage: UNK(NK MG, LETZTE 16012020)
  3. KALINOR?RETARD P [Concomitant]
     Dosage: 600 MILLIGRAM(600 MG, 2?2?2?0, RETARD?KAPSELN)
     Route: 048
  4. DEXAMETHASON                       /00016001/ [Concomitant]
     Active Substance: DEXAMETHASONE
     Dosage: 4 MILLIGRAM(4 MG, 1?0?0?0, TABLETTEN)
     Route: 048
  5. ALLOPURINOL. [Concomitant]
     Active Substance: ALLOPURINOL
     Dosage: 100 MILLIGRAM(100 MG, 0?1?0?0, TABLETTEN)
     Route: 048
  6. PANTOPRAZOL                        /01263201/ [Concomitant]
     Active Substance: PANTOPRAZOLE
     Dosage: 40 MILLIGRAM(40 MG, 1?0?0?0, TABLETTEN)
     Route: 048
  7. ONDANSETRON [Concomitant]
     Active Substance: ONDANSETRON
     Dosage: 8 MILLIGRAM(8 MG, 1?0?1?0, TABLETTEN)
     Route: 048
  8. MORPHIN                            /00036302/ [Concomitant]
     Active Substance: MORPHINE SULFATE
     Dosage: 10 MILLIGRAM(10 MG, 1?0?1?0, RETARD?TABLETTEN)
     Route: 048
  9. METAMIZOL                          /06276701/ [Concomitant]
     Active Substance: METAMIZOLE
     Dosage: 500 MILLIGRAM(500 MG, BEI BEDARF, TABLETTEN)
     Route: 048
  10. METOPROLOL. [Concomitant]
     Active Substance: METOPROLOL
     Dosage: 95 MILLIGRAM(95 MG, 0.5?0?0.5?0, RETARD?TABLETTEN)
     Route: 048
  11. FENTANYL. [Concomitant]
     Active Substance: FENTANYL
     Dosage: UNK(75 ?G/H, WECHSEL ALLE 3 TAGE, PFLASTER TRANSDERMAL)
     Route: 062
  12. LORAZEPAM. [Concomitant]
     Active Substance: LORAZEPAM
     Dosage: 1 MILLIGRAM, (1 MG, BEI BEDARF,? TABLETTEN)
     Route: 048
  13. METOCLOPRAMID                      /00041901/ [Concomitant]
     Active Substance: METOCLOPRAMIDE
     Dosage: 10 MILLIGRAM(10 MG, 1?1?1?0, TABLETTEN)
     Route: 048
  14. OLANZAPIN [Concomitant]
     Active Substance: OLANZAPINE
     Dosage: 5 MILLIGRAM(5 MG, 0?0?1?0, TABLETTEN)
     Route: 048
  15. ENOXAPARIN [Suspect]
     Active Substance: ENOXAPARIN
     Indication: PRODUCT USED FOR UNKNOWN INDICATION
     Dosage: 0.4 MILLILITER(0.4 ML, 1?0?0?0, AMPULLEN)
     Route: 058

REACTIONS (7)
  - Haematochezia [Recovering/Resolving]
  - General physical health deterioration [Recovering/Resolving]
  - Pallor [Recovering/Resolving]
  - Mucosal haemorrhage [Recovering/Resolving]
  - Anaemia [Recovering/Resolving]
  - Dizziness [Recovering/Resolving]
  - Dyspnoea [Recovering/Resolving]
